FAERS Safety Report 10741469 (Version 4)
Quarter: 2015Q4

REPORT INFORMATION
  Report Type: Spontaneous
  Country: US (occurrence: None)
  Receive Date: 20150123
  Receipt Date: 20151125
  Transmission Date: 20160304
  Serious: Yes (Life-Threatening, Hospitalization, Other)
  Sender: FDA-Public Use
  Company Number: ADR-2015-00153

PATIENT
  Age: 63 Year
  Sex: Male

DRUGS (2)
  1. COMPOUNDED BACLOFEN INTRATHECAL 500 MCG/ML [Suspect]
     Active Substance: BACLOFEN
     Indication: PAIN
     Dosage: 160 MCG/DAY
  2. BUPIVACAINE INTRATHECAL 5 MG/ML [Suspect]
     Active Substance: BUPIVACAINE
     Indication: PAIN
     Dosage: 1.6 MG/DAY

REACTIONS (8)
  - Feeling abnormal [None]
  - Unresponsive to stimuli [None]
  - Brain injury [None]
  - Muscle rigidity [None]
  - Overdose [None]
  - Device malfunction [None]
  - Incorrect route of drug administration [None]
  - Fall [None]
